FAERS Safety Report 4873296-X (Version None)
Quarter: 2005Q4

REPORT INFORMATION
  Report Type: 
  Country: None (occurrence: None)
  Receive Date: 20051229
  Receipt Date: 20050926
  Transmission Date: 20060501
  Serious: Yes (Hospitalization)
  Sender: FDA-Public Use
  Company Number: 2005BH001329

PATIENT
  Sex: 0

DRUGS (1)
  1. ALBUTEIN [Suspect]
     Indication: ISCHAEMIC STROKE

REACTIONS (1)
  - BRAIN OEDEMA [None]
